FAERS Safety Report 6869717-3 (Version None)
Quarter: 2010Q3

REPORT INFORMATION
  Report Type: 
  Country: None (occurrence: None)
  Receive Date: 20100722
  Receipt Date: 20080820
  Transmission Date: 20110219
  Serious: No
  Sender: FDA-Public Use
  Company Number: US-PFIZER INC-2008070480

PATIENT
  Sex: Female
  Weight: 65 kg

DRUGS (9)
  1. CHANTIX [Suspect]
     Indication: SMOKING CESSATION THERAPY
     Dates: start: 20080808
  2. MOGADON [Concomitant]
  3. LEVAQUIN [Concomitant]
  4. ANTIHYPERTENSIVES [Concomitant]
  5. FOLIC ACID [Concomitant]
  6. CELEBREX [Concomitant]
  7. VITAMIN B-12 [Concomitant]
  8. LOVASTATIN [Concomitant]
  9. ZYRTEC [Concomitant]

REACTIONS (1)
  - NAUSEA [None]
